FAERS Safety Report 7297620-6 (Version None)
Quarter: 2011Q1

REPORT INFORMATION
  Report Type: 
  Country: None (occurrence: None)
  Receive Date: 20110216
  Receipt Date: 20110209
  Transmission Date: 20110831
  Serious: Yes (Other)
  Sender: FDA-Public Use
  Company Number: ZA-B.I. PHARMACEUTICALS,INC./RIDGEFIELD-2011-DE-01022GD

PATIENT
  Age: 27 Year
  Sex: Female

DRUGS (3)
  1. LAMIVUDINE [Suspect]
     Indication: HIV TEST POSITIVE
  2. NEVIRAPINE [Suspect]
     Indication: HIV TEST POSITIVE
  3. STAVUDINE [Suspect]
     Indication: HIV TEST POSITIVE

REACTIONS (1)
  - CONVULSION [None]
